FAERS Safety Report 9338712 (Version 3)
Quarter: 2013Q3

REPORT INFORMATION
  Report Type: Report from Study
  Country: US (occurrence: US)
  Receive Date: 20130610
  Receipt Date: 20130808
  Transmission Date: 20140515
  Serious: Yes (Other)
  Sender: FDA-Public Use
  Company Number: US-BAYER-2013-068791

PATIENT
  Age: 80 Year
  Sex: Male

DRUGS (2)
  1. NEXAVAR [Suspect]
     Indication: RENAL CELL CARCINOMA
     Dosage: 400 MG, BID
     Route: 048
     Dates: start: 20130524
  2. INSULIN [Concomitant]
     Indication: DIABETES MELLITUS
     Route: 058

REACTIONS (7)
  - Blood glucose decreased [Not Recovered/Not Resolved]
  - Malaise [None]
  - Fatigue [None]
  - Diarrhoea [Not Recovered/Not Resolved]
  - Decreased appetite [None]
  - Hyperkeratosis [None]
  - Back pain [None]
